FAERS Safety Report 9055691 (Version 1)
Quarter: 2013Q1

REPORT INFORMATION
  Report Type: Spontaneous
  Country: TW (occurrence: TW)
  Receive Date: 20130206
  Receipt Date: 20130206
  Transmission Date: 20140127
  Serious: Yes (Death, Hospitalization)
  Sender: FDA-Public Use
  Company Number: TW-BAXTER-2013BAX004074

PATIENT
  Sex: Female

DRUGS (3)
  1. DIANEAL LOW CALCIUM (2.5 MEQ/L) PD SOLUTION WITH 1.5% DEXTROSE ^BAXTER [Suspect]
     Indication: PERITONEAL DIALYSIS
     Route: 033
  2. DIANEAL LOW CALCIUM (2.5 MEQ/L) PD SOLUTION WITH 2.5% DEXTROSE ^BAXTER [Suspect]
     Indication: PERITONEAL DIALYSIS
     Route: 033
  3. NUTRINEAL PD4 WITH 1.1% AMINO ACID SOLUTION [Suspect]
     Indication: PERITONEAL DIALYSIS
     Route: 033

REACTIONS (2)
  - Multi-organ failure [Fatal]
  - Neoplasm malignant [Unknown]
